FAERS Safety Report 18810834 (Version 3)
Quarter: 2021Q3

REPORT INFORMATION
  Report Type: Report from Study
  Country: BR (occurrence: BR)
  Receive Date: 20210129
  Receipt Date: 20210712
  Transmission Date: 20211014
  Serious: Yes (Disabling, Other)
  Sender: FDA-Public Use
  Company Number: NVSC2021BR017129

PATIENT
  Sex: Male
  Weight: 95 kg

DRUGS (1)
  1. COSENTYX [Suspect]
     Active Substance: SECUKINUMAB
     Indication: ANKYLOSING SPONDYLITIS
     Dosage: UNK
     Route: 065
     Dates: start: 20201214

REACTIONS (8)
  - Ankylosing spondylitis [Unknown]
  - Mobility decreased [Not Recovered/Not Resolved]
  - Arthralgia [Recovering/Resolving]
  - Sleep disorder [Unknown]
  - Gait disturbance [Not Recovered/Not Resolved]
  - Pain [Recovering/Resolving]
  - Fatigue [Unknown]
  - Back pain [Recovering/Resolving]
